FAERS Safety Report 13323252 (Version 1)
Quarter: 2017Q1

REPORT INFORMATION
  Report Type: Spontaneous
  Country: CN (occurrence: CN)
  Receive Date: 20170309
  Receipt Date: 20170309
  Transmission Date: 20170428
  Serious: Yes (Death)
  Sender: FDA-Public Use
  Company Number: CN-JNJFOC-20170306135

PATIENT
  Age: 74 Year
  Sex: Male

DRUGS (4)
  1. ZYTIGA [Suspect]
     Active Substance: ABIRATERONE ACETATE
     Indication: HORMONE-REFRACTORY PROSTATE CANCER
     Dosage: STRENGTH: 250 MG 4 TABLETS
     Route: 048
     Dates: start: 20170220
  2. PREDNISONE. [Concomitant]
     Active Substance: PREDNISONE
     Indication: HORMONE-REFRACTORY PROSTATE CANCER
     Dosage: STRENGTH: 250 MG 4 TABLETS
     Route: 048
     Dates: start: 20170220
  3. ZOLADEX [Concomitant]
     Active Substance: GOSERELIN ACETATE
     Indication: HORMONE-REFRACTORY PROSTATE CANCER
     Dosage: STRENGTH: 250 MG 4 TABLETS
     Route: 065
  4. TRIPTORELIN [Concomitant]
     Active Substance: TRIPTORELIN
     Indication: HORMONE-REFRACTORY PROSTATE CANCER
     Dosage: STRENGTH: 250 MG 4 TABLETS
     Route: 065

REACTIONS (1)
  - Coronary artery disease [Fatal]
